FAERS Safety Report 20064601 (Version 1)
Quarter: 2021Q4

REPORT INFORMATION
  Report Type: Spontaneous
  Country: GB (occurrence: GB)
  Receive Date: 20211112
  Receipt Date: 20211112
  Transmission Date: 20220304
  Serious: Yes (Other)
  Sender: FDA-Public Use
  Company Number: GB-OTSUKA-2017_013515

PATIENT
  Age: 51 Year
  Sex: Male

DRUGS (2)
  1. ABILIFY MAINTENA [Suspect]
     Active Substance: ARIPIPRAZOLE
     Indication: Schizoaffective disorder
     Dosage: 400 MG, UNK
     Route: 065
     Dates: start: 20150501, end: 20160902
  2. ABILIFY [Suspect]
     Active Substance: ARIPIPRAZOLE
     Indication: Schizoaffective disorder
     Dosage: UNK
     Route: 048

REACTIONS (8)
  - Sarcoidosis [Unknown]
  - Dissociation [Unknown]
  - Paranoia [Unknown]
  - Disturbance in attention [Unknown]
  - Insomnia [Unknown]
  - Product use in unapproved indication [Unknown]
  - Therapeutic response shortened [Unknown]
  - Product dose omission issue [Unknown]

NARRATIVE: CASE EVENT DATE: 20160801
